FAERS Safety Report 12460801 (Version 1)
Quarter: 2016Q2

REPORT INFORMATION
  Report Type: Not Available
  Country: US (occurrence: US)
  Receive Date: 20160613
  Receipt Date: 20160613
  Transmission Date: 20160815
  Serious: No
  Sender: FDA-Public Use
  Company Number: US-ANIPHARMA-2016-US-002694

PATIENT
  Age: 52 Year
  Sex: Female
  Weight: 97.52 kg

DRUGS (16)
  1. PROPRANOLOL [Suspect]
     Active Substance: PROPRANOLOL\PROPRANOLOL HYDROCHLORIDE
     Dosage: ONCE DAILY
     Route: 048
     Dates: end: 20151112
  2. ATORVASTATIN CALCIUM. [Concomitant]
     Active Substance: ATORVASTATIN CALCIUM
     Dosage: ONCE DAILY
     Route: 048
     Dates: start: 20151110
  3. LISINOPRIL. [Concomitant]
     Active Substance: LISINOPRIL
     Dosage: 1 MG DAILY
     Route: 048
  4. CHANTIX [Concomitant]
     Active Substance: VARENICLINE TARTRATE
     Route: 048
  5. XANAX [Concomitant]
     Active Substance: ALPRAZOLAM
     Route: 048
  6. AMITRIPTYLINE HYDROCHLORIDE. [Concomitant]
     Active Substance: AMITRIPTYLINE HYDROCHLORIDE
     Dosage: 1 MG NIGHTLY, AS NEEDED
     Route: 048
  7. ALPRAZOLAM. [Concomitant]
     Active Substance: ALPRAZOLAM
     Dosage: AT BEDTIME
     Route: 048
  8. AMBIEN [Suspect]
     Active Substance: ZOLPIDEM TARTRATE
     Route: 048
  9. MOTRIN [Concomitant]
     Active Substance: IBUPROFEN
     Dosage: 600 MG DAILY
     Route: 048
  10. BUSPIRONE HYDROCHLORIDE. [Concomitant]
     Active Substance: BUSPIRONE HYDROCHLORIDE
     Dosage: 1/2 TABLET TWICE DAILY AS NEEDED
     Route: 065
  11. EVAMIST [Concomitant]
     Active Substance: ESTRADIOL
     Route: 061
  12. FLUOXETINE HYDROCHLORIDE. [Concomitant]
     Active Substance: FLUOXETINE HYDROCHLORIDE
     Dosage: 1 MG DAILY
     Route: 048
  13. FLUTICASONE PROPIONATE. [Concomitant]
     Active Substance: FLUTICASONE PROPIONATE
     Route: 045
  14. MIGRANAL [Concomitant]
     Active Substance: DIHYDROERGOTAMINE MESYLATE
     Dosage: TWICE DAILY
     Route: 045
  15. BOTOX [Concomitant]
     Active Substance: ONABOTULINUMTOXINA
     Route: 065
  16. ACETAMINOPHEN\HYDROCODONE BITARTRATE [Concomitant]
     Active Substance: ACETAMINOPHEN\HYDROCODONE BITARTRATE
     Dosage: 5-500MG AS NEEDED
     Route: 048

REACTIONS (28)
  - Increased upper airway secretion [Unknown]
  - Ear pain [Unknown]
  - Poor quality sleep [Unknown]
  - Fatigue [Unknown]
  - Drug ineffective for unapproved indication [Unknown]
  - Productive cough [Unknown]
  - Temperature intolerance [Unknown]
  - Malaise [Unknown]
  - Neck pain [Unknown]
  - Nocturia [Unknown]
  - Migraine [Unknown]
  - Umbilical hernia [Unknown]
  - Pain of skin [Unknown]
  - Nasal congestion [Unknown]
  - Pain [Unknown]
  - Paraesthesia [Unknown]
  - Fungal infection [Unknown]
  - Endodontic procedure [Unknown]
  - Ear discomfort [Unknown]
  - Body temperature increased [Unknown]
  - Ear infection [Unknown]
  - Pruritus [Unknown]
  - Skin burning sensation [Unknown]
  - Excessive cerumen production [Unknown]
  - Headache [Unknown]
  - Asthenia [Unknown]
  - Fibromyalgia [Unknown]
  - Crying [Unknown]
